FAERS Safety Report 11292761 (Version 1)
Quarter: 2015Q2

REPORT INFORMATION
  Report Type: Spontaneous
  Country: US (occurrence: None)
  Receive Date: 20150623
  Receipt Date: 20150623
  Transmission Date: 20150821
  Serious: Yes (Other)
  Sender: FDA-Public Use
  Company Number: RB-69328-2014

PATIENT
  Sex: Male

DRUGS (1)
  1. DEXTROMETHORPHAN/GUAIFENESIN 1200 MG (RB RECKITT BENCKISER)) [Suspect]
     Active Substance: DEXTROMETHORPHAN\GUAIFENESIN
     Indication: COUGH
     Dosage: (1 EVERY 12 HOURS, TOOK A TOTAL OF TWO DOSES IN 2 DAYS (01-OCT-2014 AND 02-OCT-2014) UNKNOWN)
     Dates: start: 20141001

REACTIONS (2)
  - Drug ineffective [None]
  - Atrial fibrillation [None]
